FAERS Safety Report 24670985 (Version 1)
Quarter: 2024Q4

REPORT INFORMATION
  Report Type: Spontaneous
  Country: CH (occurrence: CH)
  Receive Date: 20241127
  Receipt Date: 20241127
  Transmission Date: 20250114
  Serious: Yes (Hospitalization)
  Sender: SANDOZ
  Company Number: None

PATIENT
  Age: 75 Year
  Sex: Male

DRUGS (20)
  1. AMBISOME [Suspect]
     Active Substance: AMPHOTERICIN B
     Indication: Pulmonary mucormycosis
     Dosage: 200 MG, 6H INFUSION
     Route: 042
     Dates: start: 20240809
  2. CELLCEPT [Suspect]
     Active Substance: MYCOPHENOLATE MOFETIL
     Indication: Prophylaxis against graft versus host disease
     Dosage: 1000 MG, Q12H
     Route: 048
     Dates: end: 20240806
  3. CRESEMBA [Suspect]
     Active Substance: ISAVUCONAZONIUM SULFATE
     Indication: Pulmonary mucormycosis
     Dosage: 200 MG, SWITCH FROM CRESEMBA TO AMBISOME ON  09.08.2024, AGAIN FROM 23.08.2024-DATO
     Route: 048
     Dates: start: 20240725, end: 20240809
  4. SULFAMETHOXAZOLE\TRIMETHOPRIM [Suspect]
     Active Substance: SULFAMETHOXAZOLE\TRIMETHOPRIM
     Indication: Antifungal prophylaxis
     Dosage: 1 DF, MO, MI, FR
     Route: 048
  5. PANTOPRAZOLE SODIUM [Suspect]
     Active Substance: PANTOPRAZOLE SODIUM
     Indication: Prophylaxis against gastrointestinal ulcer
     Dosage: 20 MG, QD, 1-0-0-0
     Route: 065
  6. PREVYMIS [Suspect]
     Active Substance: LETERMOVIR
     Indication: Antiviral prophylaxis
     Dosage: 480 MG, BID, 0-2-0-0
     Route: 048
  7. PROGRAF [Suspect]
     Active Substance: TACROLIMUS
     Dosage: 1 MG, 1 MG ON 08/09/24, 1-0-0-1.5MG ON 10.08.24,  DAILY AFTER LEVEL DETERMINATION. 1.5-0-0-0 ON 13.0
     Route: 065
     Dates: start: 20240908
  8. PROGRAF [Suspect]
     Active Substance: TACROLIMUS
     Dosage: 1.5 MG, QD, 1 MG ON 08/09/24, 1-0-0-1.5MG ON 10.08.24,  DAILY AFTER LEVEL DETERMINATION. 1.5-0-0-0 O
     Route: 065
     Dates: start: 20240810
  9. PROGRAF [Suspect]
     Active Substance: TACROLIMUS
     Indication: Prophylaxis against graft versus host disease
     Dosage: 1.5 MG
     Route: 065
     Dates: start: 202407
  10. PROGRAF [Suspect]
     Active Substance: TACROLIMUS
     Dosage: UNK, 1 MG ON 08/09/24, 1-0-0-1.5MG ON 10.08.24,  DAILY AFTER LEVEL DETERMINATION. 1.5-0-0-0 ON 13.08
     Route: 065
  11. VALACYCLOVIR HYDROCHLORIDE [Suspect]
     Active Substance: VALACYCLOVIR HYDROCHLORIDE
     Indication: Antiviral prophylaxis
     Dosage: 500 MG, QD, 1-0-0-0
     Route: 048
  12. FRAGMIN [Concomitant]
     Active Substance: DALTEPARIN SODIUM
     Indication: Product used for unknown indication
     Dosage: UNK, QD, 5000 I.E./0.2ML, 0-1-0-0
     Route: 065
  13. FREKA-CLYSS [Concomitant]
     Indication: Product used for unknown indication
     Dosage: UNK
     Route: 065
     Dates: end: 20240812
  14. CALCIUM CARBONATE\CHOLECALCIFEROL [Concomitant]
     Active Substance: CALCIUM CARBONATE\CHOLECALCIFEROL
     Indication: Product used for unknown indication
     Dosage: 1 DF, QD, 1-0-0-0
     Route: 065
  15. MAGNESIUM ASPARTATE HYDROCHLORIDE [Concomitant]
     Active Substance: MAGNESIUM ASPARTATE HYDROCHLORIDE
     Indication: Product used for unknown indication
     Dosage: 10 MMOL, QD, 0-1-0-0
     Route: 065
  16. MAGNESIUM SULFATE [Concomitant]
     Active Substance: MAGNESIUM SULFATE
     Indication: Product used for unknown indication
     Dosage: UNK, 10 % DOSE EVERY
     Route: 065
     Dates: end: 20240810
  17. ACETAMINOPHEN [Concomitant]
     Active Substance: ACETAMINOPHEN
     Indication: Product used for unknown indication
     Dosage: UNK
     Route: 065
     Dates: end: 20240811
  18. Supradyn pro energy complex [Concomitant]
     Indication: Product used for unknown indication
     Dosage: UNK, QD, 0-1-0-0
     Route: 065
  19. CLEMASTINE FUMARATE [Concomitant]
     Active Substance: CLEMASTINE FUMARATE
     Indication: Product used for unknown indication
     Dosage: UNK
     Route: 065
     Dates: end: 20240811
  20. CHOLECALCIFEROL [Concomitant]
     Active Substance: CHOLECALCIFEROL
     Indication: Product used for unknown indication
     Dosage: 4000 I.E./ML, DIENSTAG
     Route: 065

REACTIONS (3)
  - Acute kidney injury [Recovering/Resolving]
  - Drug interaction [Recovering/Resolving]
  - Drug interaction [Recovering/Resolving]

NARRATIVE: CASE EVENT DATE: 20240701
